FAERS Safety Report 9565302 (Version 1)
Quarter: 2013Q3

REPORT INFORMATION
  Report Type: Spontaneous
  Country: US (occurrence: US)
  Receive Date: 20130930
  Receipt Date: 20130930
  Transmission Date: 20140515
  Serious: Yes (Other)
  Sender: FDA-Public Use
  Company Number: US-MYLANLABS-2013S1021668

PATIENT
  Age: 54 Year
  Sex: Female
  Weight: 136.08 kg

DRUGS (2)
  1. EPIPEN 2-PAK [Suspect]
     Indication: ANAPHYLACTIC REACTION
     Route: 030
     Dates: start: 20130819
  2. BENADRYL [Concomitant]
     Indication: HYPERSENSITIVITY

REACTIONS (2)
  - Device failure [Recovered/Resolved]
  - Drug dose omission [Recovered/Resolved]
